FAERS Safety Report 10040632 (Version 2)
Quarter: 2014Q2

REPORT INFORMATION
  Report Type: Report from Study
  Country: DE (occurrence: DE)
  Receive Date: 20140327
  Receipt Date: 20140429
  Transmission Date: 20141212
  Serious: Yes (Hospitalization, Other)
  Sender: FDA-Public Use
  Company Number: DE-ROCHE-1370782

PATIENT
  Age: 73 Year
  Sex: Female
  Weight: 57 kg

DRUGS (5)
  1. ZELBORAF [Suspect]
     Indication: METASTATIC MALIGNANT MELANOMA
     Route: 048
     Dates: start: 20111026
  2. BETAGALEN [Concomitant]
     Indication: ECZEMA
     Route: 065
  3. PARACETAMOL [Concomitant]
     Indication: PAIN
     Route: 065
  4. L-THYROXINE [Concomitant]
     Indication: HYPOTHYROIDISM
     Route: 048
     Dates: start: 200110
  5. CARVEDILOL [Concomitant]
     Indication: HYPERTENSION
     Route: 048
     Dates: start: 199005

REACTIONS (11)
  - Keratoacanthoma [Unknown]
  - Erysipelas [Unknown]
  - Laryngeal leukoplakia [Unknown]
  - Leukoplakia [Not Recovered/Not Resolved]
  - Arthralgia [Recovered/Resolved]
  - Pain in extremity [Unknown]
  - Alopecia [Unknown]
  - Oropharyngeal pain [Unknown]
  - Photosensitivity reaction [Unknown]
  - Skin papilloma [Recovered/Resolved]
  - Dysaesthesia [Not Recovered/Not Resolved]
